FAERS Safety Report 4831988-2 (Version None)
Quarter: 2005Q4

REPORT INFORMATION
  Report Type: 
  Country: None (occurrence: None)
  Receive Date: 20051116
  Receipt Date: 20050721
  Transmission Date: 20060501
  Serious: Yes (Life-Threatening, Hospitalization)
  Sender: FDA-Public Use
  Company Number: PHHO2005PL08708

PATIENT
  Age: 37 Year
  Sex: Female
  Weight: 48 kg

DRUGS (6)
  1. FTY720 VS MMF (MYCOPHENOLATE MOFETIL COMP-MYC+) UNKNOWN [Suspect]
     Indication: RENAL TRANSPLANT
     Dosage: 1 G, BID, ORAL
     Route: 048
     Dates: start: 20041028, end: 20050704
  2. ISONIAZID [Suspect]
     Dosage: 0.2 G/DAY, ORAL
     Route: 048
     Dates: start: 20050624, end: 20050703
  3. TACROLIMUS (TACROLIMUS) [Concomitant]
  4. PREDNISONE [Concomitant]
  5. PYRAZINAMIDE [Suspect]
     Dosage: 1.0 G/DAY, ORAL
     Route: 048
     Dates: start: 20050625, end: 20050702
  6. RIFAMPICIN [Suspect]
     Dosage: 0.45 G/DAY, ORAL
     Route: 048
     Dates: start: 20050627, end: 20050703

REACTIONS (10)
  - DIALYSIS [None]
  - DISEASE PROGRESSION [None]
  - DRUG INEFFECTIVE [None]
  - GENERAL PHYSICAL HEALTH DETERIORATION [None]
  - GRAFT DYSFUNCTION [None]
  - HEPATIC FAILURE [None]
  - MYCOBACTERIAL INFECTION [None]
  - PLEURAL EFFUSION [None]
  - PNEUMONIA [None]
  - PULMONARY TUBERCULOSIS [None]
